FAERS Safety Report 24222891 (Version 1)
Quarter: 2024Q3

REPORT INFORMATION
  Report Type: Report from Study
  Country: MX (occurrence: MX)
  Receive Date: 20240819
  Receipt Date: 20240819
  Transmission Date: 20241016
  Serious: Yes (Hospitalization)
  Sender: JOHNSON AND JOHNSON
  Company Number: MX-JNJFOC-20240832548

PATIENT
  Age: 60 Year
  Sex: Male
  Weight: 85 kg

DRUGS (4)
  1. SIMPONI [Suspect]
     Active Substance: GOLIMUMAB
     Indication: Ankylosing spondylitis
     Dosage: LAST DRUG APPLICATION WAS ON 25-JUL-2024
     Route: 058
     Dates: start: 20240725, end: 20240725
  2. LOPRESSOR [Concomitant]
     Active Substance: METOPROLOL TARTRATE
  3. VIALIBRAM [Concomitant]
     Dosage: 7 MG/5 MG
  4. ASPIRIN [Concomitant]
     Active Substance: ASPIRIN

REACTIONS (7)
  - Pain [Unknown]
  - Hypotension [Not Recovered/Not Resolved]
  - Tachycardia [Not Recovered/Not Resolved]
  - Decreased immune responsiveness [Unknown]
  - Infection [Unknown]
  - Benign prostatic hyperplasia [Unknown]
  - Diverticulum intestinal [Unknown]

NARRATIVE: CASE EVENT DATE: 20240803
